FAERS Safety Report 5239178-9 (Version None)
Quarter: 2007Q1

REPORT INFORMATION
  Report Type: 
  Country: None (occurrence: None)
  Receive Date: 20061208
  Receipt Date: 20050909
  Transmission Date: 20070707
  Serious: Yes (Other)
  Sender: FDA-Public Use
  Company Number: 2005UW13379

PATIENT
  Age: 63 Year
  Sex: Female
  Weight: 63.049 kg

DRUGS (14)
  1. CRESTOR [Suspect]
     Indication: BLOOD CHOLESTEROL INCREASED
     Dosage: 10 MG PO
     Route: 048
     Dates: start: 20050701
  2. LIPITOR [Concomitant]
  3. CARDIZEM [Concomitant]
  4. TRENTAL [Concomitant]
  5. ISOPTIN [Concomitant]
  6. DICLOFENAC SODIUM [Concomitant]
  7. ALTACE [Concomitant]
  8. ASPIRIN [Concomitant]
  9. NITROGLYCERIN [Concomitant]
  10. FIORICET [Concomitant]
  11. PAXIL [Concomitant]
  12. ANTIVERT [Concomitant]
  13. VALIUM [Concomitant]
  14. ERYTHROMYCIN [Concomitant]

REACTIONS (3)
  - AGITATION [None]
  - ANXIETY [None]
  - MYALGIA [None]
